FAERS Safety Report 5572415-X (Version None)
Quarter: 2007Q4

REPORT INFORMATION
  Report Type: 
  Country: None (occurrence: None)
  Receive Date: 20071222
  Receipt Date: 20071214
  Transmission Date: 20080405
  Serious: Yes (Other)
  Sender: FDA-Public Use
  Company Number: JP-PFIZER INC-2007105927

PATIENT
  Age: 78 Year
  Sex: Female

DRUGS (2)
  1. ZYVOX [Suspect]
     Indication: STAPHYLOCOCCAL INFECTION
     Dosage: DAILY DOSE:1200MG
     Route: 042
     Dates: start: 20071121, end: 20071127
  2. ZYVOX [Suspect]
     Dosage: DAILY DOSE:1200MG
     Route: 042
     Dates: start: 20071205, end: 20071211

REACTIONS (2)
  - HYPONATRAEMIA [None]
  - NAUSEA [None]
